FAERS Safety Report 7532870-2 (Version None)
Quarter: 2011Q2

REPORT INFORMATION
  Report Type: 
  Country: None (occurrence: None)
  Receive Date: 20110608
  Receipt Date: 20110601
  Transmission Date: 20111010
  Serious: Yes (Hospitalization)
  Sender: FDA-Public Use
  Company Number: CA-PFIZER INC-2010070085

PATIENT
  Sex: Male

DRUGS (1)
  1. LIPITOR [Suspect]
     Dosage: 10 MG, 1X/DAY
     Dates: start: 20080306

REACTIONS (5)
  - PERIPHERAL COLDNESS [None]
  - TREMOR [None]
  - ABDOMINAL PAIN UPPER [None]
  - DRUG INTOLERANCE [None]
  - DYSPNOEA [None]
